FAERS Safety Report 21162871 (Version 1)
Quarter: 2022Q3

REPORT INFORMATION
  Report Type: Spontaneous
  Country: US (occurrence: US)
  Receive Date: 20220802
  Receipt Date: 20220802
  Transmission Date: 20221026
  Serious: Yes (Death, Other)
  Sender: FDA-Public Use
  Company Number: US-SA-SAC20220802000215

PATIENT
  Age: 62 Year
  Sex: Male

DRUGS (1)
  1. ZANTAC [Suspect]
     Active Substance: RANITIDINE HYDROCHLORIDE
     Indication: Dyspepsia
     Dosage: 3 TIMES DAILY
     Route: 048
     Dates: start: 1986, end: 202004

REACTIONS (4)
  - Oesophageal carcinoma [Unknown]
  - Gastric cancer [Unknown]
  - Hepatic cancer [Unknown]
  - Death [Fatal]

NARRATIVE: CASE EVENT DATE: 20200401
